FAERS Safety Report 4883865-9 (Version None)
Quarter: 2006Q1

REPORT INFORMATION
  Report Type: 
  Country: None (occurrence: None)
  Receive Date: 20060112
  Receipt Date: 20060103
  Transmission Date: 20060701
  Serious: Yes (Hospitalization)
  Sender: FDA-Public Use
  Company Number: 13167

PATIENT
  Age: 79 Year
  Sex: Female

DRUGS (5)
  1. AMIODARONE HCL [Suspect]
     Indication: ARRHYTHMIA
     Dosage: 100 MG PO
     Route: 048
     Dates: start: 20020101
  2. BISOPROLOL [Concomitant]
  3. FUROSEMIDE [Concomitant]
  4. SALBUTAMOL [Concomitant]
  5. IPRATROPIUM BROMIDE [Concomitant]

REACTIONS (1)
  - HYPOTHYROIDISM [None]
